FAERS Safety Report 15476955 (Version 1)
Quarter: 2018Q4

REPORT INFORMATION
  Report Type: Spontaneous
  Country: US (occurrence: US)
  Receive Date: 20181001
  Receipt Date: 20181001
  Transmission Date: 20190205
  Serious: Yes (Death, Hospitalization)
  Sender: FDA-Public Use
  Company Number: None

PATIENT
  Age: 70 Year
  Sex: Female
  Weight: 74.1 kg

DRUGS (1)
  1. MEMANTINE HYDROCHLORIDE. [Suspect]
     Active Substance: MEMANTINE HYDROCHLORIDE
     Dates: end: 20180213

REACTIONS (8)
  - Asthenia [None]
  - Kidney infection [None]
  - Failure to thrive [None]
  - Physical deconditioning [None]
  - Dehydration [None]
  - General physical health deterioration [None]
  - Deep vein thrombosis [None]
  - Decreased appetite [None]

NARRATIVE: CASE EVENT DATE: 20180214
